FAERS Safety Report 6126475-8 (Version None)
Quarter: 2009Q1

REPORT INFORMATION
  Report Type: 
  Country: None (occurrence: None)
  Receive Date: 20090320
  Receipt Date: 20090311
  Transmission Date: 20090719
  Serious: Yes (Other)
  Sender: FDA-Public Use
  Company Number: US-PFIZER INC-2009183080

PATIENT
  Age: 64 Year
  Sex: Male

DRUGS (1)
  1. LIPITOR [Suspect]
     Indication: BLOOD CHOLESTEROL INCREASED
     Dosage: UNIT DOSE: UNKNOWN;
     Dates: start: 20080101, end: 20090201

REACTIONS (3)
  - HYPOTONIA [None]
  - MYALGIA [None]
  - SENSORY LOSS [None]
